FAERS Safety Report 6876881-9 (Version None)
Quarter: 2010Q2

REPORT INFORMATION
  Report Type: 
  Country: None (occurrence: None)
  Receive Date: 20100616
  Receipt Date: 20100416
  Transmission Date: 20101027
  Serious: No
  Sender: FDA-Public Use
  Company Number: DSA_42956_2010

PATIENT
  Sex: Female

DRUGS (1)
  1. XENAZINE [Suspect]
     Indication: MUSCLE TWITCHING
     Dosage: (12.5 MG BID ORAL)
     Route: 048
     Dates: start: 20100301

REACTIONS (3)
  - COUGH [None]
  - DRY MOUTH [None]
  - DYSPHAGIA [None]
